FAERS Safety Report 16387051 (Version 1)
Quarter: 2019Q2

REPORT INFORMATION
  Report Type: Spontaneous
  Country: ES (occurrence: ES)
  Receive Date: 20190604
  Receipt Date: 20190604
  Transmission Date: 20190711
  Serious: Yes (Other)
  Sender: FDA-Public Use
  Company Number: ES-AMGEN-ESPSP2019085146

PATIENT
  Age: 34 Year
  Sex: Female

DRUGS (1)
  1. ROMIPLOSTIM [Suspect]
     Active Substance: ROMIPLOSTIM
     Indication: PLATELET COUNT DECREASED
     Dosage: 250 MICROGRAM, QWK
     Route: 065

REACTIONS (3)
  - Platelet count decreased [Unknown]
  - Therapeutic response decreased [Unknown]
  - Mucocutaneous haemorrhage [Unknown]
